FAERS Safety Report 7027442-2 (Version None)
Quarter: 2010Q4

REPORT INFORMATION
  Report Type: 
  Country: None (occurrence: None)
  Receive Date: 20101001
  Receipt Date: 20101001
  Transmission Date: 20110411
  Serious: No
  Sender: FDA-Public Use
  Company Number: None

PATIENT
  Sex: Female
  Weight: 99.7913 kg

DRUGS (3)
  1. LEVOTHYROXINE SODIUM [Suspect]
     Indication: HYPOTHYROIDISM
     Dosage: 1 TAB DAILY ORAL 047
     Route: 048
     Dates: start: 20070101, end: 20080101
  2. SYNTHROID [Concomitant]
  3. LEVOTHROID [Concomitant]

REACTIONS (3)
  - ABNORMAL BEHAVIOUR [None]
  - FATIGUE [None]
  - MALAISE [None]
